FAERS Safety Report 10041773 (Version 2)
Quarter: 2014Q2

REPORT INFORMATION
  Report Type: Spontaneous
  Country: GB (occurrence: GB)
  Receive Date: 20140327
  Receipt Date: 20140507
  Transmission Date: 20141212
  Serious: Yes (Hospitalization)
  Sender: FDA-Public Use
  Company Number: GB-ACTAVIS-2014-05478

PATIENT
  Age: 57 Year
  Sex: Female

DRUGS (14)
  1. ACYCLOVIR (UNKNOWN) [Suspect]
     Indication: ENCEPHALITIS
     Dosage: UNK
     Route: 042
     Dates: start: 20140220, end: 20140224
  2. CEFTRIAXONE (UNKNOWN) [Suspect]
     Indication: ENCEPHALITIS
     Dosage: 1 G, UNKNOWN; VIALS
     Route: 042
     Dates: start: 20140220
  3. PARACETAMOL  (UNKNOWN) [Suspect]
     Indication: ENCEPHALITIS
     Dosage: 1 G, QID; STARTED THIS ADMISSION
     Route: 065
  4. ASPIRIN [Concomitant]
     Indication: PRODUCT USED FOR UNKNOWN INDICATION
     Dosage: 75 MG, DAILY
     Route: 065
  5. CHLORDIAZEPOXIDE [Concomitant]
     Indication: PRODUCT USED FOR UNKNOWN INDICATION
     Dosage: UNK
     Route: 065
     Dates: start: 20140217
  6. FRAGMIN [Concomitant]
     Indication: PRODUCT USED FOR UNKNOWN INDICATION
     Dosage: 5000 IU, DAILY; 5000IU/0.2ML
     Route: 065
  7. HALOPERIDOL [Concomitant]
     Indication: PRODUCT USED FOR UNKNOWN INDICATION
     Dosage: 1 MG, PRN; TWICE DAILY WHEN REQUIRED
     Route: 040
     Dates: start: 20140217, end: 20140223
  8. LAMOTRIGINE [Concomitant]
     Indication: PRODUCT USED FOR UNKNOWN INDICATION
     Dosage: 450 MG, BID
     Route: 065
  9. LEVETIRACETAM [Concomitant]
     Indication: PRODUCT USED FOR UNKNOWN INDICATION
     Dosage: 1 DF= 500 MG EVERY MORNING AND 1 G AT NIGHT
     Route: 065
  10. LORAZEPAM [Concomitant]
     Indication: PRODUCT USED FOR UNKNOWN INDICATION
     Dosage: 0.5 MG, QID
     Route: 040
     Dates: start: 20140224
  11. NIMOTOP [Concomitant]
     Indication: PRODUCT USED FOR UNKNOWN INDICATION
     Dosage: 60 MG, Q4H
     Route: 065
  12. OMEPRAZOLE [Concomitant]
     Indication: PRODUCT USED FOR UNKNOWN INDICATION
     Dosage: 20 MG, DAILY
     Route: 065
     Dates: start: 20140216
  13. PABRINEX                           /01800301/ [Concomitant]
     Indication: PRODUCT USED FOR UNKNOWN INDICATION
     Dosage: 2 DF, TID; ASCORBIC ACID + NICOTINAMIDE}ASCORBIC ACID 500MG/2ML / NICOTINAMIDE 160MG/2ML AMPOULES
     Route: 065
     Dates: start: 20140216, end: 20140219
  14. SANDO K                            /00209301/ [Concomitant]
     Indication: PRODUCT USED FOR UNKNOWN INDICATION
     Dosage: 1 DF, BID; POTASSIUM BICARBONATE + POTASSIUM CHLORIDE}POTASSIUM CHLORIDE (POTASSIUM 12MMOL)
     Route: 065
     Dates: start: 20140224

REACTIONS (1)
  - Alanine aminotransferase increased [Recovered/Resolved with Sequelae]
